FAERS Safety Report 5006642-7 (Version None)
Quarter: 2006Q2

REPORT INFORMATION
  Report Type: 
  Country: None (occurrence: None)
  Receive Date: 20060519
  Receipt Date: 20060515
  Transmission Date: 20061013
  Serious: Yes (Hospitalization)
  Sender: FDA-Public Use
  Company Number: JP-JNJFOC-20060201463

PATIENT
  Age: 61 Year
  Sex: Female

DRUGS (6)
  1. PEPCID AC [Suspect]
     Indication: GASTRITIS
     Route: 048
  2. PEPCID AC [Suspect]
     Route: 048
  3. OTC COLD MEDICINE [Concomitant]
  4. BUSCOPAN [Concomitant]
     Indication: ABDOMINAL PAIN
  5. LAC-B [Concomitant]
  6. SELBEX [Concomitant]
     Indication: GASTRITIS

REACTIONS (2)
  - DUODENITIS [None]
  - LIVER DISORDER [None]
